FAERS Safety Report 7543273-9 (Version None)
Quarter: 2011Q2

REPORT INFORMATION
  Report Type: 
  Country: None (occurrence: None)
  Receive Date: 20110524
  Receipt Date: 20110224
  Transmission Date: 20111010
  Serious: No
  Sender: FDA-Public Use
  Company Number: 021191

PATIENT
  Sex: Female
  Weight: 59 kg

DRUGS (7)
  1. CIMZIA [Suspect]
     Indication: RHEUMATOID ARTHRITIS
     Dosage: 400 MG 1X/2 WEEKS SUBCUTANEOUS 1 SYRINGE SUBCUTANEOUS
     Route: 058
     Dates: start: 20101011, end: 20100101
  2. CIMZIA [Suspect]
     Indication: RHEUMATOID ARTHRITIS
     Dosage: 400 MG 1X/2 WEEKS SUBCUTANEOUS 1 SYRINGE SUBCUTANEOUS
     Route: 058
     Dates: start: 20101101, end: 20101201
  3. TYLENOL-500 [Concomitant]
  4. WELLBUTRIN XL [Concomitant]
  5. TOPAMAX [Concomitant]
  6. CELEBREX [Concomitant]
  7. OMEPRAZOLE [Concomitant]

REACTIONS (3)
  - DRUG ADMINISTERED AT INAPPROPRIATE SITE [None]
  - HYPERTENSION [None]
  - BLOOD PRESSURE INCREASED [None]
